FAERS Safety Report 19868959 (Version 1)
Quarter: 2021Q3

REPORT INFORMATION
  Report Type: Spontaneous
  Country: FR (occurrence: FR)
  Receive Date: 20210922
  Receipt Date: 20210922
  Transmission Date: 20211014
  Serious: Yes (Hospitalization)
  Sender: FDA-Public Use
  Company Number: FR-MYLANLABS-2021M1063537

PATIENT
  Age: 77 Year
  Sex: Female
  Weight: 81 kg

DRUGS (6)
  1. VENCLYXTO [Suspect]
     Active Substance: VENETOCLAX
     Indication: PRODUCT USED FOR UNKNOWN INDICATION
     Dosage: UNK (DAY 3)
     Route: 048
     Dates: start: 20210325, end: 20210325
  2. VENCLYXTO [Suspect]
     Active Substance: VENETOCLAX
     Dosage: UNK (DAY 4 TO DAY 21)
     Route: 048
     Dates: start: 20210326, end: 20210412
  3. POSACONAZOLE [Concomitant]
     Active Substance: POSACONAZOLE
     Indication: PROPHYLAXIS
     Dosage: UNK
     Dates: start: 20210215
  4. VENCLYXTO [Suspect]
     Active Substance: VENETOCLAX
     Dosage: UNK
     Route: 048
     Dates: start: 20210323, end: 20210323
  5. AZACITIDINE. [Suspect]
     Active Substance: AZACITIDINE
     Indication: ACUTE MYELOID LEUKAEMIA
     Dosage: UNK (DAY 1 TO DAY 7)
     Route: 065
  6. VENCLYXTO [Suspect]
     Active Substance: VENETOCLAX
     Dosage: UNK (DAY 2)
     Route: 048
     Dates: start: 20210324, end: 20210324

REACTIONS (3)
  - Off label use [Unknown]
  - Tumour lysis syndrome [Unknown]
  - Hospitalisation [Recovered/Resolved]

NARRATIVE: CASE EVENT DATE: 2021
